FAERS Safety Report 7511860 (Version 7)
Quarter: 2015Q1

REPORT INFORMATION
  Report Type: Report from Study
  Country: ES (occurrence: ES)
  Receive Date: 20100730
  Receipt Date: 20150212
  Transmission Date: 20150721
  Serious: Yes (Hospitalization)
  Sender: FDA-Public Use
  Company Number: ES-ROCHE-717195

PATIENT
  Age: 61 Year
  Sex: Male
  Weight: 56 kg

DRUGS (6)
  1. TOCILIZUMAB [Suspect]
     Active Substance: TOCILIZUMAB
     Indication: RHEUMATOID ARTHRITIS
     Dosage: FORM: IV INFUSION. LAST DOSE PRIOR TO SAE: 24 JUNE 2010. THERAPY PERMANENTLY DISCONTINUED.
     Route: 042
     Dates: start: 20091015, end: 20100717
  2. FOLIC ACID. [Concomitant]
     Active Substance: FOLIC ACID
     Dosage: 5 CAPSULES
     Route: 065
  3. PLACEBO [Suspect]
     Active Substance: UNSPECIFIED INGREDIENT
     Indication: RHEUMATOID ARTHRITIS
     Dosage: LAST DOSE PRIOR TO SAE: 13 JULY 2010. THERAPY: PERMANENTLY DISCONTINUED,
     Route: 048
     Dates: start: 20091015, end: 20100717
  4. INDOMETACINE [Concomitant]
     Route: 065
  5. OMEPRAZOLE. [Concomitant]
     Active Substance: OMEPRAZOLE
     Route: 065
  6. PREDNISONE. [Concomitant]
     Active Substance: PREDNISONE
     Route: 065

REACTIONS (3)
  - Pulmonary oedema [Recovered/Resolved]
  - Aortic stenosis [Recovered/Resolved with Sequelae]
  - Ischaemic cardiomyopathy [Recovered/Resolved with Sequelae]

NARRATIVE: CASE EVENT DATE: 20100716
